FAERS Safety Report 15066358 (Version 1)
Quarter: 2018Q2

REPORT INFORMATION
  Report Type: Report from Study
  Country: IT (occurrence: IT)
  Receive Date: 20180626
  Receipt Date: 20180626
  Transmission Date: 20180711
  Serious: Yes (Other)
  Sender: FDA-Public Use
  Company Number: IT-ADIENNEP-2018AD000163

PATIENT
  Age: 7 Year

DRUGS (7)
  1. GRAFALON [Suspect]
     Active Substance: LAPINE T-LYMPHOCYTE IMMUNE GLOBULIN
     Indication: TRANSPLANT REJECTION
     Dosage: 50 - 25 MG/KG
     Route: 042
  2. HYDROXYUREA. [Suspect]
     Active Substance: HYDROXYUREA
     Indication: GRAFT VERSUS HOST DISEASE
  3. CYCLOPHOSPHAMIDE. [Suspect]
     Active Substance: CYCLOPHOSPHAMIDE
  4. FLUDARABINE [Suspect]
     Active Substance: FLUDARABINE PHOSPHATE
  5. AZATHIOPRIN [Suspect]
     Active Substance: AZATHIOPRINE
     Indication: GRAFT VERSUS HOST DISEASE
  6. THIOTEPA. [Suspect]
     Active Substance: THIOTEPA
  7. BUSULFAN. [Suspect]
     Active Substance: BUSULFAN

REACTIONS (2)
  - Pyrexia [Unknown]
  - Drug ineffective [Unknown]
